FAERS Safety Report 25548785 (Version 1)
Quarter: 2025Q3

REPORT INFORMATION
  Report Type: Spontaneous
  Country: US (occurrence: None)
  Receive Date: 20250711
  Receipt Date: 20250711
  Transmission Date: 20251020
  Serious: Yes (Hospitalization)
  Sender: FDA-CTU
  Company Number: None

PATIENT
  Age: 79 Year
  Sex: Male
  Weight: 83.91 kg

DRUGS (3)
  1. BIKTARVY [Suspect]
     Active Substance: BICTEGRAVIR SODIUM\EMTRICITABINE\TENOFOVIR ALAFENAMIDE FUMARATE
     Indication: HIV infection
     Dosage: 50/200/25 MG DAILY ORAL?
     Route: 048
  2. MUCINEX ER [Concomitant]
  3. TYLENOL E/S (ACETAMINOPHEN) [Concomitant]

REACTIONS (5)
  - Cardiac failure congestive [None]
  - Pulmonary oedema [None]
  - Pericardial effusion [None]
  - Weight increased [None]
  - Sluggishness [None]

NARRATIVE: CASE EVENT DATE: 20250705
